FAERS Safety Report 5635410-8 (Version None)
Quarter: 2008Q1

REPORT INFORMATION
  Report Type: 
  Country: None (occurrence: None)
  Receive Date: 20080222
  Receipt Date: 20080212
  Transmission Date: 20080703
  Serious: Yes (Hospitalization)
  Sender: FDA-Public Use
  Company Number: FR-PFIZER INC-2008013790

PATIENT
  Sex: Female

DRUGS (4)
  1. LYRICA [Suspect]
     Indication: NEURALGIA
     Dosage: DAILY DOSE:25MG
     Route: 048
     Dates: start: 20070217, end: 20070226
  2. RIVOTRIL [Suspect]
     Indication: NEURALGIA
     Dosage: DAILY DOSE:2.5MG
     Route: 048
  3. ISOPTIN [Suspect]
     Indication: HYPERTENSION
     Dosage: DAILY DOSE:240MG-FREQ:DAILY
     Route: 048
  4. COLCHICINE [Suspect]
     Indication: NEURALGIA
     Dosage: DAILY DOSE:1-FREQ:DAILY
     Route: 048

REACTIONS (2)
  - CONFUSIONAL STATE [None]
  - CYTOLYTIC HEPATITIS [None]
